FAERS Safety Report 8510920-4 (Version None)
Quarter: 2012Q3

REPORT INFORMATION
  Report Type: 
  Country: None (occurrence: None)
  Receive Date: 20120716
  Receipt Date: 20120703
  Transmission Date: 20120928
  Serious: No
  Sender: FDA-Public Use
  Company Number: US-JNJFOC-20120403608

PATIENT
  Sex: Male
  Weight: 61.24 kg

DRUGS (9)
  1. DURAGESIC-100 [Suspect]
     Route: 062
     Dates: start: 20120406
  2. HYDROCODONE BITARTRATE [Concomitant]
     Indication: BREAKTHROUGH PAIN
     Route: 048
  3. DURAGESIC-100 [Suspect]
     Indication: PAIN
     Route: 062
     Dates: start: 20120501
  4. FIORINAL [Concomitant]
     Indication: HEADACHE
     Route: 048
  5. VALIUM [Concomitant]
     Indication: SLEEP DISORDER THERAPY
     Route: 048
     Dates: start: 20110101
  6. FIORICET [Concomitant]
     Indication: HEADACHE
     Route: 048
     Dates: start: 20100101
  7. LIDODERM [Concomitant]
     Indication: PAIN
     Dates: start: 20110101, end: 20120301
  8. DURAGESIC-100 [Suspect]
     Route: 062
     Dates: start: 20120312, end: 20120406
  9. LYRICA [Concomitant]
     Indication: FIBROMYALGIA
     Route: 048
     Dates: start: 20110201

REACTIONS (3)
  - PRODUCT QUALITY ISSUE [None]
  - DRUG INEFFECTIVE [None]
  - PAIN [None]
